FAERS Safety Report 20067495 (Version 2)
Quarter: 2021Q4

REPORT INFORMATION
  Report Type: Report from Study
  Country: ZA (occurrence: ZA)
  Receive Date: 20211115
  Receipt Date: 20211222
  Transmission Date: 20220303
  Serious: Yes (Other)
  Sender: FDA-Public Use
  Company Number: ZA-GLAXOSMITHKLINE-ZA2021140772

PATIENT
  Age: 71 Year
  Sex: Female

DRUGS (2)
  1. INVESTIGATIONAL PRODUCT [Suspect]
     Active Substance: INVESTIGATIONAL PRODUCT
     Indication: Prophylaxis
     Dosage: .5 ML
     Route: 030
     Dates: start: 20210529
  2. FLUARIX TETRA [Suspect]
     Active Substance: INFLUENZA VIRUS VACCINE
     Indication: Prophylaxis
     Dosage: .5 ML
     Route: 030
     Dates: start: 20210529

REACTIONS (1)
  - Acute disseminated encephalomyelitis [Not Recovered/Not Resolved]

NARRATIVE: CASE EVENT DATE: 20210620
